FAERS Safety Report 18523952 (Version 1)
Quarter: 2020Q4

REPORT INFORMATION
  Report Type: Spontaneous
  Country: US (occurrence: US)
  Receive Date: 20201119
  Receipt Date: 20201119
  Transmission Date: 20210114
  Serious: Yes (Other)
  Sender: FDA-Public Use
  Company Number: US-INCYTE CORPORATION-2020IN011413

PATIENT

DRUGS (1)
  1. JAKAFI [Suspect]
     Active Substance: RUXOLITINIB
     Indication: MYELOFIBROSIS
     Dosage: 5 MILLIGRAM, 3 TABLETS BID FOR 5 DAYS FOLLOWED BY 5 MG, 2 TABS BID
     Route: 048
     Dates: start: 201810

REACTIONS (2)
  - Haemorrhage [Recovering/Resolving]
  - Skin cancer [Recovered/Resolved]
